FAERS Safety Report 4315909-7 (Version None)
Quarter: 2004Q1

REPORT INFORMATION
  Report Type: 
  Country: None (occurrence: None)
  Receive Date: 20040310
  Receipt Date: 20040227
  Transmission Date: 20041129
  Serious: Yes (Hospitalization)
  Sender: FDA-Public Use
  Company Number: CA-JNJFOC-20040205025

PATIENT
  Age: 61 Year
  Sex: Female

DRUGS (4)
  1. ELMIRON [Suspect]
     Indication: CYSTITIS INTERSTITIAL
     Dosage: 100 MG, 3 IN 1 DAY, ORAL
     Route: 048
     Dates: start: 20030801, end: 20031101
  2. ELMIRON [Suspect]
     Indication: CYSTITIS INTERSTITIAL
     Dosage: 100 MG, 3 IN 1 DAY, ORAL
     Route: 048
     Dates: start: 20031101
  3. CALCIUM (CALCIUM) [Concomitant]
  4. VITAMIN E [Concomitant]

REACTIONS (2)
  - CONSTIPATION [None]
  - HAEMORRHOIDS [None]
